FAERS Safety Report 20248533 (Version 3)
Quarter: 2022Q1

REPORT INFORMATION
  Report Type: Report from Study
  Country: US (occurrence: US)
  Receive Date: 20211229
  Receipt Date: 20220225
  Transmission Date: 20220423
  Serious: Yes (Hospitalization, Other)
  Sender: FDA-Public Use
  Company Number: US-BRISTOL-MYERS SQUIBB COMPANY-BMS-2021-141361

PATIENT
  Age: 72 Year
  Sex: Female
  Weight: 68.8 kg

DRUGS (15)
  1. NIVOLUMAB [Suspect]
     Active Substance: NIVOLUMAB
     Indication: Pancreatic carcinoma
     Dosage: 480MG ON DAY 1 OF EVERY 28-DAY CYCLE
     Route: 042
     Dates: start: 20210610, end: 20210610
  2. TADALAFIL [Suspect]
     Active Substance: TADALAFIL
     Indication: Pancreatic carcinoma
     Dosage: 10MG, ONCE DAILY OF 28-DAY CYCLE
     Route: 048
     Dates: start: 20210610, end: 20210630
  3. VANCOMYCIN [Suspect]
     Active Substance: VANCOMYCIN
     Indication: Pancreatic carcinoma
     Dosage: 125 MG, EVERY 6 HRS DAILY FROM DAY 1 THROUGH DAY 21 OF 28-DAY CYCLE
     Route: 048
     Dates: start: 20210610, end: 20210630
  4. COLCHICINE [Concomitant]
     Active Substance: COLCHICINE
     Indication: Product used for unknown indication
     Dosage: 0.6MG, PRN
     Route: 048
  5. HUMALOG [Concomitant]
     Active Substance: INSULIN LISPRO
     Indication: Product used for unknown indication
     Dosage: 75/25, 36 UNITS BEFORE BREAKFAST, 20 UNITS BEFORE DINNER, AND 4 UNITS FOR EVERY 50MG/DI ABOVE 150MG/
     Route: 065
  6. OMEPRAZOLE [Concomitant]
     Active Substance: OMEPRAZOLE
     Indication: Product used for unknown indication
     Dosage: 20 MILLIGRAM, QD
     Route: 048
  7. METFORMIN [Concomitant]
     Active Substance: METFORMIN HYDROCHLORIDE
     Indication: Product used for unknown indication
     Dosage: 2000MG, QD AT NIGHT
     Route: 065
  8. ASPIRIN [Concomitant]
     Active Substance: ASPIRIN
     Indication: Product used for unknown indication
     Dosage: 81 MILLIGRAM, QD
     Route: 065
  9. TYLENOL [Concomitant]
     Active Substance: ACETAMINOPHEN
     Indication: Product used for unknown indication
     Dosage: 325 MILLIGRAM, QID
     Route: 048
  10. VITAMIN D3 [Concomitant]
     Active Substance: CHOLECALCIFEROL
     Indication: Product used for unknown indication
     Dosage: 1000 UNIT, QD
     Route: 065
  11. LIDOCAINE\PRILOCAINE [Concomitant]
     Active Substance: LIDOCAINE\PRILOCAINE
     Indication: Product used for unknown indication
     Route: 061
  12. ZOFRAN [Concomitant]
     Active Substance: ONDANSETRON HYDROCHLORIDE
     Indication: Product used for unknown indication
     Dosage: 8MG, PRN
     Route: 048
  13. MIRALAX [Concomitant]
     Active Substance: POLYETHYLENE GLYCOL 3350
     Indication: Product used for unknown indication
     Dosage: 17 GRAM, QD
     Route: 048
  14. DOCUSATE\SENNOSIDES [Concomitant]
     Active Substance: DOCUSATE\SENNOSIDES
     Indication: Product used for unknown indication
     Dosage: 8.6/50MG, QD
     Route: 048
  15. COMPAZINE [Concomitant]
     Active Substance: PROCHLORPERAZINE MALEATE
     Indication: Product used for unknown indication
     Dosage: 5 MILLIGRAM, QID
     Route: 048

REACTIONS (4)
  - Back pain [Recovering/Resolving]
  - Procedural pain [Unknown]
  - Post procedural fever [Unknown]
  - Urinary tract infection [Unknown]

NARRATIVE: CASE EVENT DATE: 20210613
